FAERS Safety Report 25852148 (Version 1)
Quarter: 2025Q3

REPORT INFORMATION
  Report Type: Spontaneous
  Country: US (occurrence: None)
  Receive Date: 20250925
  Receipt Date: 20250925
  Transmission Date: 20251020
  Serious: Yes (Other)
  Sender: FDA-CTU
  Company Number: None

PATIENT
  Age: 54 Year
  Sex: Female
  Weight: 59 kg

DRUGS (5)
  1. PACLITAXEL [Suspect]
     Active Substance: PACLITAXEL
     Route: 042
  2. ondansetron 16mg + Dexamethasone 20mg + Sodium Chloride 0.9% 100ml [Concomitant]
     Dates: start: 20250731, end: 20250731
  3. FOSAPREPITANT [Concomitant]
     Active Substance: FOSAPREPITANT
     Dates: start: 20250731, end: 20250731
  4. FAMOTIDINE [Concomitant]
     Active Substance: FAMOTIDINE
  5. DIPHENHYDRAMINE [Concomitant]
     Active Substance: DIPHENHYDRAMINE

REACTIONS (8)
  - Infusion related reaction [None]
  - Lip pain [None]
  - Paraesthesia oral [None]
  - Dyspnoea [None]
  - Flushing [None]
  - Hyperhidrosis [None]
  - Blood pressure systolic decreased [None]
  - Therapy interrupted [None]

NARRATIVE: CASE EVENT DATE: 20250731
